FAERS Safety Report 7029090-7 (Version None)
Quarter: 2010Q4

REPORT INFORMATION
  Report Type: 
  Country: None (occurrence: None)
  Receive Date: 20101005
  Receipt Date: 20100927
  Transmission Date: 20110411
  Serious: Yes (Other)
  Sender: FDA-Public Use
  Company Number: B0677245A

PATIENT
  Age: 61 Year
  Sex: Male

DRUGS (2)
  1. MELPHALAN HYDROCHLORIDE [Suspect]
     Dosage: 100MGM2 PER DAY
     Route: 042
  2. AUTOGRAFT OF PERIPHERAL BLOOD STEM CELLS [Concomitant]
     Route: 065

REACTIONS (2)
  - DIARRHOEA [None]
  - FEBRILE NEUTROPENIA [None]
